FAERS Safety Report 4738062-4 (Version None)
Quarter: 2005Q3

REPORT INFORMATION
  Report Type: 
  Country: None (occurrence: None)
  Receive Date: 20050805
  Receipt Date: 20050805
  Transmission Date: 20060218
  Serious: Yes (Hospitalization)
  Sender: FDA-Public Use
  Company Number: None

PATIENT
  Age: 79 Year
  Sex: Female
  Weight: 89.8 kg

DRUGS (3)
  1. HEPARIN [Suspect]
     Indication: ATRIAL FIBRILLATION
     Dosage: 25,000 UNITS/DSW/250ML IV Q 24 H
     Route: 042
     Dates: start: 20050414
  2. HEPARIN [Suspect]
     Indication: INCISIONAL HERNIA REPAIR
     Dosage: 25,000 UNITS/DSW/250ML IV Q 24 H
     Route: 042
     Dates: start: 20050414
  3. MULTIPLE MEDS [Concomitant]

REACTIONS (3)
  - HEPARIN-INDUCED THROMBOCYTOPENIA [None]
  - LABORATORY TEST INTERFERENCE [None]
  - PLATELET AGGREGATION [None]
